FAERS Safety Report 25378202 (Version 1)
Quarter: 2025Q2

REPORT INFORMATION
  Report Type: Report from Study
  Country: GB (occurrence: GB)
  Receive Date: 20250530
  Receipt Date: 20250530
  Transmission Date: 20250716
  Serious: Yes (Hospitalization)
  Sender: NOVARTIS
  Company Number: GB-002147023-NVSC2024GB227833

PATIENT
  Age: 64 Year
  Sex: Female

DRUGS (2)
  1. MAYZENT [Suspect]
     Active Substance: SIPONIMOD
     Indication: Secondary progressive multiple sclerosis
     Dosage: 2 MG, QD (ONCE DAILY)
     Route: 048
     Dates: start: 20240822
  2. MAYZENT [Suspect]
     Active Substance: SIPONIMOD
     Indication: Multiple sclerosis

REACTIONS (10)
  - Fall [Recovered/Resolved with Sequelae]
  - Contusion [Unknown]
  - Presyncope [Unknown]
  - Urinary tract infection [Unknown]
  - Memory impairment [Not Recovered/Not Resolved]
  - Hypotension [Unknown]
  - Cognitive disorder [Not Recovered/Not Resolved]
  - Affect lability [Unknown]
  - Bladder disorder [Unknown]
  - Head injury [Unknown]
